FAERS Safety Report 7780339-2 (Version None)
Quarter: 2011Q3

REPORT INFORMATION
  Report Type: 
  Country: None (occurrence: None)
  Receive Date: 20110927
  Receipt Date: 20110915
  Transmission Date: 20111222
  Serious: Yes (Death)
  Sender: FDA-Public Use
  Company Number: AR-SANOFI-AVENTIS-2011SA043708

PATIENT
  Age: 73 Year
  Sex: Female
  Weight: 75 kg

DRUGS (6)
  1. WARFARIN SODIUM [Concomitant]
     Route: 065
  2. CARVEDILOL [Concomitant]
     Route: 065
  3. ENALAPRIL [Concomitant]
     Route: 065
  4. FUROSEMIDE [Concomitant]
     Route: 065
  5. DRONEDARONE HCL [Suspect]
     Indication: ATRIAL FIBRILLATION
     Route: 048
     Dates: start: 20110518, end: 20110527
  6. DIGOXIN [Concomitant]
     Route: 065

REACTIONS (1)
  - DEATH [None]
